FAERS Safety Report 12479454 (Version 2)
Quarter: 2016Q3

REPORT INFORMATION
  Report Type: Spontaneous
  Country: BE (occurrence: BE)
  Receive Date: 20160620
  Receipt Date: 20160708
  Transmission Date: 20161109
  Serious: Yes (Hospitalization, Other)
  Sender: FDA-Public Use
  Company Number: BE-AUROBINDO-AUR-APL-2016-07722

PATIENT

DRUGS (4)
  1. PALIPERIDONE. [Suspect]
     Active Substance: PALIPERIDONE
     Indication: SCHIZOPHRENIA
     Dosage: 6 MG, DAILY
     Route: 048
     Dates: start: 20141223, end: 20150108
  2. PALIPERIDONE. [Suspect]
     Active Substance: PALIPERIDONE
     Indication: SCHIZOPHRENIA
     Dosage: 150 MG, UNK
     Route: 065
     Dates: start: 20150108
  3. OLANZAPINE 10MG [Suspect]
     Active Substance: OLANZAPINE
     Indication: PRODUCT USED FOR UNKNOWN INDICATION
     Dosage: 10 MG, DAILY
     Route: 065
     Dates: end: 20150211
  4. PALIPERIDONE. [Suspect]
     Active Substance: PALIPERIDONE
     Dosage: 100 MG, UNK
     Route: 065
     Dates: start: 20150115

REACTIONS (15)
  - Pyrexia [Unknown]
  - Nikolsky^s sign [Unknown]
  - Cytomegalovirus enterocolitis [Unknown]
  - Gastrointestinal mucosal disorder [Unknown]
  - Type 1 diabetes mellitus [Unknown]
  - Weight decreased [Unknown]
  - Condition aggravated [Unknown]
  - Diarrhoea [Unknown]
  - Septic shock [Unknown]
  - Dermatitis exfoliative [Unknown]
  - Acute kidney injury [Unknown]
  - Dehydration [Unknown]
  - Rash pruritic [Unknown]
  - Toxic epidermal necrolysis [Unknown]
  - Lip haemorrhage [Unknown]

NARRATIVE: CASE EVENT DATE: 20150202
